FAERS Safety Report 6423021-6 (Version None)
Quarter: 2009Q4

REPORT INFORMATION
  Report Type: 
  Country: None (occurrence: None)
  Receive Date: 20091102
  Receipt Date: 20091026
  Transmission Date: 20100525
  Serious: Yes (Hospitalization)
  Sender: FDA-Public Use
  Company Number: FR-ASTRAZENECA-2009SE22570

PATIENT
  Age: 6485 Day
  Sex: Female

DRUGS (6)
  1. MOPRAL [Suspect]
     Indication: GASTRITIS PROPHYLAXIS
     Route: 048
     Dates: start: 20090831
  2. NEORAL [Suspect]
     Indication: ORGAN TRANSPLANT
     Route: 048
     Dates: start: 20090831
  3. CELLCEPT [Suspect]
     Indication: ORGAN TRANSPLANT
     Route: 048
     Dates: start: 20090901
  4. SOLU-MEDROL [Concomitant]
     Route: 048
     Dates: start: 20090831
  5. TOBI [Concomitant]
     Route: 055
  6. PENTACARINAT [Concomitant]
     Route: 055

REACTIONS (1)
  - BEZOAR [None]
